FAERS Safety Report 8356842-3 (Version None)
Quarter: 2012Q2

REPORT INFORMATION
  Report Type: 
  Country: None (occurrence: None)
  Receive Date: 20120510
  Receipt Date: 20120430
  Transmission Date: 20120825
  Serious: Yes (Hospitalization)
  Sender: FDA-Public Use
  Company Number: 2012SP023127

PATIENT
  Age: 62 Year
  Sex: Female

DRUGS (1)
  1. VICTRELIS [Suspect]
     Indication: HEPATITIS C
     Dates: start: 20120207

REACTIONS (6)
  - DEHYDRATION [None]
  - RASH [None]
  - CONSTIPATION [None]
  - WEIGHT DECREASED [None]
  - HYPOTENSION [None]
  - ANAEMIA [None]
